FAERS Safety Report 5091428-8 (Version None)
Quarter: 2006Q3

REPORT INFORMATION
  Report Type: 
  Country: None (occurrence: None)
  Receive Date: 20060727
  Receipt Date: 20060407
  Transmission Date: 20061208
  Serious: Yes (Other)
  Sender: FDA-Public Use
  Company Number: 2006051423

PATIENT
  Age: 70 Year
  Sex: Female
  Weight: 58.9676 kg

DRUGS (7)
  1. LYRICA [Suspect]
     Indication: NEUROPATHY PERIPHERAL
     Dosage: 50 MG (25 MG,2 IN 1 SEC)
  2. LEVOTHYROXINE SODIUM [Concomitant]
  3. XALATAN [Concomitant]
  4. TIMOPTIC [Concomitant]
  5. PREMARIN [Concomitant]
  6. TRIAMTERENE (TRIAMTERENE) [Concomitant]
  7. SOTALOL HCL [Concomitant]

REACTIONS (2)
  - AGITATION [None]
  - NERVOUSNESS [None]
